FAERS Safety Report 5823793-5 (Version None)
Quarter: 2008Q3

REPORT INFORMATION
  Report Type: 
  Country: None (occurrence: None)
  Receive Date: 20080725
  Receipt Date: 20080716
  Transmission Date: 20090109
  Serious: Yes (Hospitalization)
  Sender: FDA-Public Use
  Company Number: US-ABBOTT-08P-163-0464219-00

PATIENT
  Age: 58 Year
  Sex: Female

DRUGS (5)
  1. DEPAKOTE [Suspect]
     Indication: ANXIETY
  2. SYNTHROID [Suspect]
     Indication: THYROIDECTOMY
  3. FOLIC ACID [Suspect]
     Indication: DRUG USE FOR UNKNOWN INDICATION
  4. OXCARBAZEPINE [Suspect]
     Indication: ANXIETY
     Dosage: 1 TAB
  5. CLOZAPINE [Suspect]
     Indication: DRUG USE FOR UNKNOWN INDICATION

REACTIONS (2)
  - FEELING ABNORMAL [None]
  - INSOMNIA [None]
